FAERS Safety Report 17847919 (Version 1)
Quarter: 2020Q2

REPORT INFORMATION
  Report Type: Spontaneous
  Country: US (occurrence: US)
  Receive Date: 20200601
  Receipt Date: 20200601
  Transmission Date: 20200714
  Serious: Yes (Other)
  Sender: FDA-Public Use
  Company Number: US-AMERICAN REGENT INC-2020001143

PATIENT
  Age: 61 Year
  Sex: Male

DRUGS (15)
  1. SILDENAFIL. [Concomitant]
     Active Substance: SILDENAFIL
     Indication: PRODUCT USED FOR UNKNOWN INDICATION
     Dosage: UNK
     Route: 048
  2. NOREPINEPHRINE. [Suspect]
     Active Substance: NOREPINEPHRINE
     Indication: VASOPRESSIVE THERAPY
     Dosage: UNK
     Route: 065
  3. ALCOHOL. [Concomitant]
     Active Substance: ALCOHOL
     Indication: PRODUCT USED FOR UNKNOWN INDICATION
     Dosage: UNK
     Route: 048
  4. DILTIAZEM. [Concomitant]
     Active Substance: DILTIAZEM
     Indication: PRODUCT USED FOR UNKNOWN INDICATION
     Dosage: UNK
     Route: 048
  5. GABAPENTIN. [Concomitant]
     Active Substance: GABAPENTIN
     Indication: PRODUCT USED FOR UNKNOWN INDICATION
     Dosage: UNK
     Route: 048
  6. EPINEPHRINE INJECTION, USP (0517-1071-01) [Suspect]
     Active Substance: EPINEPHRINE
     Indication: CARDIOGENIC SHOCK
  7. FAT EMULSION NOS [Suspect]
     Active Substance: EGG PHOSPHOLIPIDS\SAFFLOWER OIL\SOYBEAN OIL
     Indication: CARDIOGENIC SHOCK
     Dosage: 1.5 ML/KG (300 MG/KG)
  8. ALLOPURINOL. [Concomitant]
     Active Substance: ALLOPURINOL
     Indication: PRODUCT USED FOR UNKNOWN INDICATION
     Dosage: UNK
     Route: 048
  9. INSULIN [Suspect]
     Active Substance: INSULIN NOS
     Indication: CARDIOGENIC SHOCK
     Dosage: HIGH DOSE
     Route: 065
  10. SOTALOL. [Concomitant]
     Active Substance: SOTALOL
     Indication: PRODUCT USED FOR UNKNOWN INDICATION
     Dosage: UNK
     Route: 048
  11. DOPAMINE HCL INJECTION, USP (1805-25) [Suspect]
     Active Substance: DOPAMINE HYDROCHLORIDE
     Indication: CARDIOGENIC SHOCK
  12. DOPAMINE HCL INJECTION, USP (1805-25) [Suspect]
     Active Substance: DOPAMINE HYDROCHLORIDE
     Indication: VASOPRESSIVE THERAPY
     Dosage: UNK
     Route: 065
  13. EPINEPHRINE INJECTION, USP (0517-1071-01) [Suspect]
     Active Substance: EPINEPHRINE
     Indication: VASOPRESSIVE THERAPY
     Dosage: UNK
     Route: 065
  14. NOREPINEPHRINE. [Suspect]
     Active Substance: NOREPINEPHRINE
     Indication: CARDIOGENIC SHOCK
  15. CLONIDINE. [Concomitant]
     Active Substance: CLONIDINE
     Indication: PRODUCT USED FOR UNKNOWN INDICATION
     Dosage: UNK
     Route: 048

REACTIONS (3)
  - Cardiogenic shock [Recovered/Resolved]
  - Drug ineffective for unapproved indication [Recovered/Resolved]
  - Product use in unapproved indication [Unknown]
